FAERS Safety Report 6376084-0 (Version None)
Quarter: 2009Q3

REPORT INFORMATION
  Report Type: 
  Country: None (occurrence: None)
  Receive Date: 20090918
  Receipt Date: 20090903
  Transmission Date: 20100115
  Serious: Yes (Hospitalization)
  Sender: FDA-Public Use
  Company Number: A20090713-001

PATIENT
  Age: 75 Year
  Sex: Female

DRUGS (3)
  1. PITAVASTATIN CALCIUM [Suspect]
     Dosage: 2 MG/DAY, PO
     Route: 048
     Dates: start: 20041001
  2. CANDESARTAN CI EXETIL [Concomitant]
  3. SPIRONOLACTONE [Concomitant]

REACTIONS (1)
  - BILE DUCT CANCER [None]
